FAERS Safety Report 7970608-5 (Version None)
Quarter: 2011Q4

REPORT INFORMATION
  Report Type: 
  Country: None (occurrence: None)
  Receive Date: 20111212
  Receipt Date: 20111201
  Transmission Date: 20120403
  Serious: Yes (Death)
  Sender: FDA-Public Use
  Company Number: JP-SANOFI-AVENTIS-2011SA080765

PATIENT
  Age: 77 Year
  Sex: Female
  Weight: 44.5 kg

DRUGS (1)
  1. ZOLPIDEM [Suspect]
     Route: 048

REACTIONS (1)
  - DEATH [None]
